FAERS Safety Report 7798920-3 (Version None)
Quarter: 2011Q4

REPORT INFORMATION
  Report Type: 
  Country: None (occurrence: None)
  Receive Date: 20111006
  Receipt Date: 20111003
  Transmission Date: 20120403
  Serious: No
  Sender: FDA-Public Use
  Company Number: US-PFIZER INC-2011236268

PATIENT
  Sex: Female
  Weight: 67.12 kg

DRUGS (4)
  1. VITAMIN D [Concomitant]
     Dosage: UNK
  2. PREVACID [Concomitant]
     Indication: ABDOMINAL DISCOMFORT
     Dosage: UNK
  3. ARTHROTEC [Suspect]
     Indication: ARTHRITIS
     Dosage: ONE TABLET ORALLY TWO TIMES A DAY
     Route: 048
     Dates: start: 20110929, end: 20111002
  4. ARTHROTEC [Suspect]
     Dosage: UNK
     Route: 048
     Dates: end: 20111002

REACTIONS (1)
  - ABDOMINAL DISCOMFORT [None]
